FAERS Safety Report 5102508-2 (Version None)
Quarter: 2006Q3

REPORT INFORMATION
  Report Type: 
  Country: None (occurrence: None)
  Receive Date: 20060908
  Receipt Date: 20060830
  Transmission Date: 20061208
  Serious: Yes (Hospitalization)
  Sender: FDA-Public Use
  Company Number: US200604002038

PATIENT
  Age: 58 Year
  Sex: Female

DRUGS (25)
  1. CYMBALTA [Suspect]
     Indication: NEUROPATHY PERIPHERAL
     Dates: start: 20050114, end: 20050119
  2. KLOR-CON [Concomitant]
  3. AMBIEN [Concomitant]
  4. ATENOLOL [Concomitant]
  5. DIOVAN [Concomitant]
  6. LEVOTHYROXINE SODIUM [Concomitant]
  7. GABAPENTIN [Concomitant]
  8. GEMFIBROZIL [Concomitant]
  9. PREMARIN [Concomitant]
  10. LASIX (FUROSEMIDE, FUROSEMIDE SODIUM) [Concomitant]
  11. NEURONTIN [Concomitant]
  12. MORPHINE SULFATE INJ [Concomitant]
  13. PHENERGAN (PROMETHAZINE HYDROCHLORIDE) [Concomitant]
  14. DURAGESIC-100 [Concomitant]
  15. DIFLUCAN [Concomitant]
  16. ATENOLOL W/CHLORTALIDONE [Concomitant]
  17. XANAX [Concomitant]
  18. PROTONIX [Concomitant]
  19. MYCOSTATIN [Concomitant]
  20. MORPHINE SULFATE INJ [Concomitant]
  21. CLORASEPTIC SORE THROAT SPRAY (PHENOL) [Concomitant]
  22. XOPENEX [Concomitant]
  23. ALBUTEROL [Concomitant]
  24. ACETAMINOPHEN [Concomitant]
  25. DARVOCET-N 100 [Concomitant]

REACTIONS (18)
  - ACUTE PRERENAL FAILURE [None]
  - ANAEMIA [None]
  - ANXIETY [None]
  - BALANCE DISORDER [None]
  - CEREBROVASCULAR ACCIDENT [None]
  - DIZZINESS [None]
  - GASTRIC ULCER [None]
  - GASTRITIS [None]
  - HYPOTENSION [None]
  - MYOCLONUS [None]
  - NERVE INJURY [None]
  - NEUROPATHY PERIPHERAL [None]
  - OCCULT BLOOD POSITIVE [None]
  - RENAL FAILURE ACUTE [None]
  - RESPIRATORY ACIDOSIS [None]
  - RESPIRATORY FAILURE [None]
  - RHABDOMYOLYSIS [None]
  - VISUAL DISTURBANCE [None]
